FAERS Safety Report 14176591 (Version 1)
Quarter: 2017Q4

REPORT INFORMATION
  Report Type: Spontaneous
  Country: US (occurrence: US)
  Receive Date: 20171109
  Receipt Date: 20171109
  Transmission Date: 20180321
  Serious: Yes (Other)
  Sender: FDA-Public Use
  Company Number: None

PATIENT
  Age: 62 Year
  Sex: Female
  Weight: 58.5 kg

DRUGS (5)
  1. ARISTOCORT [Suspect]
     Active Substance: TRIAMCINOLONE DIACETATE
     Indication: ECZEMA
  2. VITAMIN D3 [Concomitant]
     Active Substance: CHOLECALCIFEROL
  3. MAGNESIUM [Concomitant]
     Active Substance: MAGNESIUM
  4. KENALOG [Suspect]
     Active Substance: TRIAMCINOLONE ACETONIDE
     Indication: ECZEMA
  5. TRIAMCINALONE [Suspect]
     Active Substance: TRIAMCINOLONE
     Indication: ECZEMA
     Dosage: QUANTITY:1 TUBES;?
     Route: 061

REACTIONS (15)
  - Insomnia [None]
  - Skin exfoliation [None]
  - Erythema [None]
  - Chills [None]
  - Depression [None]
  - Steroid withdrawal syndrome [None]
  - Skin burning sensation [None]
  - Hyperhidrosis [None]
  - Drug ineffective [None]
  - Feeling hot [None]
  - Rash generalised [None]
  - Secretion discharge [None]
  - Neuralgia [None]
  - Decreased appetite [None]
  - Lymphadenopathy [None]

NARRATIVE: CASE EVENT DATE: 20100901
